FAERS Safety Report 20969306 (Version 1)
Quarter: 2022Q2

REPORT INFORMATION
  Report Type: Spontaneous
  Country: US (occurrence: US)
  Receive Date: 20220616
  Receipt Date: 20220616
  Transmission Date: 20220721
  Serious: No
  Sender: FDA-Public Use
  Company Number: US-SK LIFE SCIENCE, INC-SKPVG-2022-000254

PATIENT

DRUGS (2)
  1. XCOPRI [Suspect]
     Active Substance: CENOBAMATE
     Indication: Product used for unknown indication
     Dosage: UNK
     Route: 048
     Dates: start: 2021
  2. XCOPRI [Suspect]
     Active Substance: CENOBAMATE
     Dosage: 250 MG (150MG AND 100 MG TABLETS IN EACH DAILY BLISTER PACK), 1 OF EACH TABLET, QD
     Route: 048
     Dates: start: 202204

REACTIONS (1)
  - Product blister packaging issue [Recovered/Resolved]

NARRATIVE: CASE EVENT DATE: 20220401
